FAERS Safety Report 12012352 (Version 1)
Quarter: 2016Q1

REPORT INFORMATION
  Report Type: Spontaneous
  Country: US (occurrence: US)
  Receive Date: 20160205
  Receipt Date: 20160205
  Transmission Date: 20160526
  Serious: No
  Sender: FDA-Public Use
  Company Number: US-HORIZON-PEN-0035-2016

PATIENT
  Age: 44 Year
  Sex: Female

DRUGS (4)
  1. SYNTHROID [Concomitant]
     Active Substance: LEVOTHYROXINE SODIUM
  2. LINZESS [Concomitant]
     Active Substance: LINACLOTIDE
  3. SYMBALTA [Concomitant]
  4. PENNSAID [Suspect]
     Active Substance: DICLOFENAC SODIUM
     Indication: BACK PAIN
     Dosage: 3 PUMPS PRN

REACTIONS (2)
  - Off label use [Unknown]
  - Incorrect dose administered [Unknown]
